FAERS Safety Report 14346277 (Version 3)
Quarter: 2018Q1

REPORT INFORMATION
  Report Type: Report from Study
  Country: GB (occurrence: GB)
  Receive Date: 20180103
  Receipt Date: 20180228
  Transmission Date: 20180509
  Serious: Yes (Life-Threatening, Hospitalization, Other)
  Sender: FDA-Public Use
  Company Number: GB-PFIZER INC-2018001438

PATIENT
  Sex: Female

DRUGS (3)
  1. RAMIPRIL. [Suspect]
     Active Substance: RAMIPRIL
     Dosage: UNK
     Route: 048
  2. TOCILIZUMAB. [Suspect]
     Active Substance: TOCILIZUMAB
     Dosage: 162 MG, WEEKLY
     Route: 058
     Dates: start: 20170315
  3. TOCILIZUMAB. [Suspect]
     Active Substance: TOCILIZUMAB
     Indication: RHEUMATOID ARTHRITIS
     Dosage: 162 MG, WEEKLY
     Route: 058
     Dates: start: 20170313

REACTIONS (15)
  - Dyspnoea [Unknown]
  - Heart rate increased [Unknown]
  - Rash [Unknown]
  - Hair disorder [Unknown]
  - Back pain [Unknown]
  - Pyrexia [Unknown]
  - Rales [Unknown]
  - Blood pressure increased [Unknown]
  - Feeling abnormal [Unknown]
  - Chest discomfort [Unknown]
  - Pruritus [Unknown]
  - Malaise [Unknown]
  - Cough [Unknown]
  - Blood potassium decreased [Unknown]
  - Headache [Unknown]
